FAERS Safety Report 5481786-4 (Version None)
Quarter: 2007Q4

REPORT INFORMATION
  Report Type: 
  Country: None (occurrence: None)
  Receive Date: 20071010
  Receipt Date: 20071001
  Transmission Date: 20080405
  Serious: Yes (Other)
  Sender: FDA-Public Use
  Company Number: JP-ABBOTT-06P-087-0341392-00

PATIENT
  Age: 48 Year
  Sex: Male

DRUGS (7)
  1. KALETRA [Suspect]
     Indication: HIV INFECTION
     Route: 048
     Dates: start: 20060731
  2. KALETRA [Suspect]
     Indication: HIV INFECTION
     Route: 048
     Dates: start: 20060516, end: 20060531
  3. EFAVIRENZ [Suspect]
     Indication: HIV INFECTION
     Route: 048
     Dates: start: 20060731
  4. EFAVIRENZ [Suspect]
     Route: 048
     Dates: start: 20050817, end: 20060515
  5. LAMIVUDINE [Suspect]
     Indication: HEPATITIS B
     Route: 048
     Dates: start: 20060705
  6. DIDANOSINE [Concomitant]
     Indication: HIV INFECTION
     Route: 048
     Dates: start: 20050817, end: 20060515
  7. EMTRICITABINE W/TENOFOVIR [Concomitant]
     Indication: HIV INFECTION
     Route: 048
     Dates: start: 20050817, end: 20060515

REACTIONS (1)
  - HYPERLACTACIDAEMIA [None]
